FAERS Safety Report 6710604-9 (Version None)
Quarter: 2010Q2

REPORT INFORMATION
  Report Type: 
  Country: None (occurrence: None)
  Receive Date: 20100430
  Receipt Date: 20100420
  Transmission Date: 20101027
  Serious: Yes (Hospitalization, Congenital Anomaly)
  Sender: FDA-Public Use
  Company Number: 1000011860

PATIENT
  Sex: Male

DRUGS (1)
  1. CITALOPRAM HYDROBROMIDE [Suspect]
     Dosage: 20 MG (20 MG,1 IN 1 D) ; 40 MG (40 MG,1 IN 1 D),TRANSPLACENTAL
     Route: 064

REACTIONS (5)
  - CONTINUOUS POSITIVE AIRWAY PRESSURE [None]
  - MATERNAL DRUGS AFFECTING FOETUS [None]
  - OXYGEN SATURATION DECREASED [None]
  - PERSISTENT FOETAL CIRCULATION [None]
  - PNEUMOTHORAX [None]
